FAERS Safety Report 16905747 (Version 1)
Quarter: 2019Q4

REPORT INFORMATION
  Report Type: Spontaneous
  Country: US (occurrence: US)
  Receive Date: 20191010
  Receipt Date: 20191010
  Transmission Date: 20200122
  Serious: No
  Sender: FDA-Public Use
  Company Number: US-TEVA-2019-US-1118039

PATIENT
  Age: 71 Year
  Sex: Female

DRUGS (1)
  1. METRONIDAZOLE TEVA [Suspect]
     Active Substance: METRONIDAZOLE
     Indication: CLOSTRIDIUM DIFFICILE INFECTION
     Route: 065

REACTIONS (2)
  - Tremor [Unknown]
  - Hallucination [Unknown]
